FAERS Safety Report 10265911 (Version 2)
Quarter: 2014Q3

REPORT INFORMATION
  Report Type: Spontaneous
  Country: JP (occurrence: JP)
  Receive Date: 20140627
  Receipt Date: 20140804
  Transmission Date: 20150326
  Serious: Yes (Other)
  Sender: FDA-Public Use
  Company Number: PHHY2014JP079423

PATIENT

DRUGS (2)
  1. LAMISIL [Suspect]
     Active Substance: TERBINAFINE HYDROCHLORIDE
     Dosage: UNK UKN, UNK
     Route: 048
  2. EXCEGRAN [Concomitant]
     Active Substance: ZONISAMIDE
     Dosage: UNK UKN, UNK
     Route: 048

REACTIONS (1)
  - Epilepsy [Unknown]
